FAERS Safety Report 12682784 (Version 2)
Quarter: 2017Q2

REPORT INFORMATION
  Report Type: Report from Study
  Country: CA (occurrence: CA)
  Receive Date: 20160825
  Receipt Date: 20170622
  Transmission Date: 20170830
  Serious: Yes (Death, Other)
  Sender: FDA-Public Use
  Company Number: CA-ROCHE-1817919

PATIENT

DRUGS (1)
  1. ALTEPLASE [Suspect]
     Active Substance: ALTEPLASE
     Indication: ISCHAEMIC STROKE
     Route: 042

REACTIONS (20)
  - Cerebrovascular accident [Unknown]
  - Neoplasm malignant [Unknown]
  - Embolism [Unknown]
  - Atrial fibrillation [Unknown]
  - Cardiac failure congestive [Unknown]
  - Pulmonary oedema [Unknown]
  - Cerebral haemorrhage [Unknown]
  - Cerebral artery perforation [Unknown]
  - Gastrointestinal haemorrhage [Unknown]
  - Deep vein thrombosis [Unknown]
  - Haematoma [Unknown]
  - Carotid endarterectomy [Unknown]
  - Fall [Unknown]
  - Pneumonia [Unknown]
  - Angioedema [Unknown]
  - Seizure [Unknown]
  - Death [Fatal]
  - Sepsis [Unknown]
  - Myocardial infarction [Unknown]
  - Pulmonary embolism [Unknown]
